FAERS Safety Report 6401506-6 (Version None)
Quarter: 2009Q4

REPORT INFORMATION
  Report Type: 
  Country: None (occurrence: None)
  Receive Date: 20091015
  Receipt Date: 20091013
  Transmission Date: 20100525
  Serious: Yes (Life-Threatening, Hospitalization)
  Sender: FDA-Public Use
  Company Number: FR-BRISTOL-MYERS SQUIBB COMPANY-14815922

PATIENT
  Age: 43 Year
  Sex: Female

DRUGS (5)
  1. REYATAZ [Suspect]
     Indication: HIV INFECTION
     Dosage: TAKEN FROM 08FEB08-30MAY08.
     Route: 048
     Dates: start: 20090422
  2. NORVIR [Suspect]
     Indication: HIV INFECTION
     Dosage: TAKEN FROM 08FEB08-30MAY08.
     Route: 048
     Dates: start: 20090422
  3. TRUVADA [Suspect]
     Indication: HIV INFECTION
     Dosage: 1DF=200MG/245MG;TAKEN FROM 08FEB08-30MAY08.
     Route: 048
     Dates: start: 20090422
  4. COMBIVIR [Suspect]
     Indication: HIV INFECTION
     Dosage: 1DF=150MG/300MG
     Route: 048
     Dates: start: 20080530, end: 20090422
  5. KALETRA [Suspect]
     Indication: HIV INFECTION
     Route: 048
     Dates: start: 20080530, end: 20090422

REACTIONS (1)
  - MYOCARDIAL INFARCTION [None]
